FAERS Safety Report 8115435-3 (Version None)
Quarter: 2012Q1

REPORT INFORMATION
  Report Type: 
  Country: None (occurrence: None)
  Receive Date: 20120206
  Receipt Date: 20120124
  Transmission Date: 20120608
  Serious: Yes (Other)
  Sender: FDA-Public Use
  Company Number: US-ELI_LILLY_AND_COMPANY-US201201008422

PATIENT
  Sex: Male

DRUGS (4)
  1. CYMBALTA [Suspect]
     Dosage: 60 MG, UNK
  2. CYMBALTA [Suspect]
     Dosage: 30 MG, UNK
     Dates: start: 20111001
  3. CYMBALTA [Suspect]
     Dosage: 90 MG, UNK
  4. CYMBALTA [Suspect]
     Dosage: 30 MG, UNK
     Dates: end: 20120101

REACTIONS (6)
  - SEROTONIN SYNDROME [None]
  - URINARY RETENTION [None]
  - AGITATION [None]
  - WITHDRAWAL SYNDROME [None]
  - SEXUAL DYSFUNCTION [None]
  - MENTAL STATUS CHANGES [None]
